FAERS Safety Report 4330102-X (Version None)
Quarter: 2004Q1

REPORT INFORMATION
  Report Type: 
  Country: None (occurrence: None)
  Receive Date: 20040329
  Receipt Date: 20040316
  Transmission Date: 20041129
  Serious: Yes (Death, Hospitalization)
  Sender: FDA-Public Use
  Company Number: BE-JNJFOC-20040303559

PATIENT
  Age: 91 Year
  Sex: Female

DRUGS (1)
  1. DURAGESIC [Suspect]
     Dosage: 25 UG/HR, TRANSDERMAL
     Route: 062

REACTIONS (3)
  - ACUTE RESPIRATORY DISTRESS SYNDROME [None]
  - CARDIAC FAILURE [None]
  - RENAL FAILURE ACUTE [None]
